APPROVED DRUG PRODUCT: IBUPROFEN
Active Ingredient: IBUPROFEN
Strength: 200MG
Dosage Form/Route: TABLET;ORAL
Application: A202312 | Product #001
Applicant: GRANULES INDIA LTD
Approved: Oct 7, 2016 | RLD: No | RS: No | Type: OTC